FAERS Safety Report 4602007-8 (Version None)
Quarter: 2005Q1

REPORT INFORMATION
  Report Type: 
  Country: None (occurrence: None)
  Receive Date: 20050215
  Receipt Date: 20041020
  Transmission Date: 20050727
  Serious: Yes (Other)
  Sender: FDA-Public Use
  Company Number: 384080

PATIENT
  Age: 46 Year
  Sex: Female
  Weight: 62.6 kg

DRUGS (3)
  1. PEGASYS [Suspect]
     Indication: HEPATITIS C VIRUS
     Dosage: 180 MCG 1 PER WEEK SUBCUTANEOUS
     Route: 058
     Dates: start: 20040529, end: 20041122
  2. COPEGUS [Suspect]
     Indication: HEPATITIS C VIRUS
     Dosage: 2 PER DAY ORAL
     Route: 048
     Dates: start: 20040529, end: 20041122
  3. ATENOLOL [Concomitant]

REACTIONS (15)
  - ABDOMINAL PAIN [None]
  - ANAEMIA [None]
  - ARTHRITIS [None]
  - ASTHENIA [None]
  - FATIGUE [None]
  - HUNGER [None]
  - JOINT SWELLING [None]
  - ORAL FUNGAL INFECTION [None]
  - PRURITUS [None]
  - RASH [None]
  - SKIN INFLAMMATION [None]
  - SYSTEMIC LUPUS ERYTHEMATOSUS [None]
  - TENDONITIS [None]
  - WEIGHT INCREASED [None]
  - WHITE BLOOD CELL COUNT DECREASED [None]
